FAERS Safety Report 15207620 (Version 1)
Quarter: 2018Q3

REPORT INFORMATION
  Report Type: Spontaneous
  Country: DE (occurrence: DE)
  Receive Date: 20180727
  Receipt Date: 20180727
  Transmission Date: 20181010
  Serious: Yes (Death)
  Sender: FDA-Public Use
  Company Number: DE-TEVA-2018-DE-934322

PATIENT
  Age: 71 Year
  Sex: Female

DRUGS (4)
  1. PROTHIPENDYL HYDROCHLORIDE MONOHYDRATE [Interacting]
     Active Substance: PROTHIPENDYL HYDROCHLORIDE
     Dosage: 80MG ADMINISTERED THE PREVIOUS DAY AND TWO DAYS BEFORE HER DISCOVERY, BOTH DOSES AT 11 P.M
     Route: 065
  2. METAMIZOLE [Concomitant]
     Active Substance: METAMIZOLE
     Dosage: REGULAR MEDICATION
     Route: 065
  3. OLANZAPINE. [Suspect]
     Active Substance: OLANZAPINE
     Route: 065
  4. MELPERONE [Concomitant]
     Active Substance: MELPERONE
     Dosage: REGULAR MEDICATION
     Route: 065

REACTIONS (5)
  - Cardiotoxicity [Fatal]
  - Brain oedema [Fatal]
  - Toxicity to various agents [None]
  - Drug interaction [Fatal]
  - Pulmonary oedema [Fatal]
